FAERS Safety Report 5112750-2 (Version None)
Quarter: 2006Q3

REPORT INFORMATION
  Report Type: 
  Country: None (occurrence: None)
  Receive Date: 20060919
  Receipt Date: 20060905
  Transmission Date: 20061208
  Serious: Yes (Hospitalization)
  Sender: FDA-Public Use
  Company Number: 02100-JPN-06-0432

PATIENT
  Sex: Female

DRUGS (1)
  1. CILOSTAZOL [Suspect]
     Dosage: ORAL
     Route: 048

REACTIONS (1)
  - THYROID CANCER [None]
